FAERS Safety Report 7739456-5 (Version None)
Quarter: 2011Q3

REPORT INFORMATION
  Report Type: 
  Country: None (occurrence: None)
  Receive Date: 20110909
  Receipt Date: 20110826
  Transmission Date: 20111222
  Serious: Yes (Hospitalization, Disabling)
  Sender: FDA-Public Use
  Company Number: PH-JNJFOC-20110804785

PATIENT
  Sex: Male
  Weight: 75.5 kg

DRUGS (3)
  1. CLONAZEPAM [Concomitant]
     Indication: ANXIETY
  2. INVEGA SUSTENNA [Suspect]
     Indication: SCHIZOPHRENIA
     Route: 030
     Dates: start: 20110729
  3. INVEGA SUSTENNA [Suspect]
     Route: 030
     Dates: start: 20100915

REACTIONS (2)
  - DENGUE FEVER [None]
  - WHITE BLOOD CELL COUNT DECREASED [None]
